FAERS Safety Report 9197797 (Version 3)
Quarter: 2013Q2

REPORT INFORMATION
  Report Type: Spontaneous
  Country: US (occurrence: US)
  Receive Date: 20130328
  Receipt Date: 20130510
  Transmission Date: 20140414
  Serious: Yes (Other)
  Sender: FDA-Public Use
  Company Number: US-PFIZER INC-2013098397

PATIENT
  Age: 25 Year
  Sex: Female
  Weight: 97.51 kg

DRUGS (3)
  1. DILANTIN-125 [Suspect]
     Indication: EPILEPSY
     Dosage: (200MG IN THE MORNING AND 300MG AT NIGHT) UNK
     Route: 048
     Dates: start: 1966
  2. DILANTIN-125 [Suspect]
     Indication: CONVULSION
  3. PHENOBARBITAL [Concomitant]
     Dosage: UNK

REACTIONS (1)
  - Thrombosis [Not Recovered/Not Resolved]
